FAERS Safety Report 7951874-9 (Version None)
Quarter: 2011Q4

REPORT INFORMATION
  Report Type: 
  Country: None (occurrence: None)
  Receive Date: 20111201
  Receipt Date: 20111201
  Transmission Date: 20120403
  Serious: Yes (Other)
  Sender: FDA-Public Use
  Company Number: None

PATIENT
  Age: 42 Year
  Sex: Female
  Weight: 58.967 kg

DRUGS (1)
  1. CYMBALTA [Suspect]
     Indication: MYALGIA
     Dosage: 60 MG
     Route: 048

REACTIONS (1)
  - DYSKINESIA [None]
